FAERS Safety Report 14158344 (Version 4)
Quarter: 2018Q1

REPORT INFORMATION
  Report Type: Spontaneous
  Country: JP (occurrence: JP)
  Receive Date: 20171103
  Receipt Date: 20180110
  Transmission Date: 20180508
  Serious: Yes (Other)
  Sender: FDA-Public Use
  Company Number: JP-PFIZER INC-2017471499

PATIENT
  Age: 61 Year
  Sex: Male

DRUGS (7)
  1. DICLOFENAC SODIUM. [Suspect]
     Active Substance: DICLOFENAC SODIUM
     Indication: BACK PAIN
     Dosage: UNK UNK, UNKNOWN FREQ.
     Route: 065
  2. ACICLOVIR [Concomitant]
     Active Substance: ACYCLOVIR
     Indication: MENINGITIS
     Dosage: UNK UNK, UNKNOWN FREQ.
     Route: 065
  3. ACELIO [Concomitant]
     Active Substance: ACETAMINOPHEN
     Dosage: UNK UNK, UNKNOWN FREQ.
     Route: 065
  4. CELECOX [Suspect]
     Active Substance: CELECOXIB
     Indication: HEADACHE
     Dosage: UNK
  5. CELECOX [Suspect]
     Active Substance: CELECOXIB
     Dosage: UNK UNK, UNKNOWN FREQ.
     Route: 065
  6. AMPHOTERICIN B. [Concomitant]
     Active Substance: AMPHOTERICIN B
     Dosage: 150 MG, 1X/DAY
     Route: 041
  7. GLYCEOL /00744501/ [Concomitant]
     Active Substance: GLYCERIN
     Dosage: UNK UNK, UNKNOWN FREQ.
     Route: 065

REACTIONS (5)
  - Product use in unapproved indication [Unknown]
  - CSF eosinophil count increased [Recovering/Resolving]
  - Condition aggravated [Recovering/Resolving]
  - Drug eruption [Recovering/Resolving]
  - Meningitis aseptic [Unknown]
